FAERS Safety Report 17065670 (Version 1)
Quarter: 2019Q4

REPORT INFORMATION
  Report Type: Spontaneous
  Country: US (occurrence: US)
  Receive Date: 20191122
  Receipt Date: 20191122
  Transmission Date: 20200122
  Serious: Yes (Other)
  Sender: FDA-Public Use
  Company Number: None

PATIENT
  Age: 48 Year
  Sex: Female

DRUGS (2)
  1. ACTIVELLA [Suspect]
     Active Substance: ESTRADIOL\NORETHINDRONE ACETATE
  2. MINIVELLE [Suspect]
     Active Substance: ESTRADIOL

REACTIONS (2)
  - Skin irritation [None]
  - Malaise [None]

NARRATIVE: CASE EVENT DATE: 20191122
